FAERS Safety Report 6553441-0 (Version None)
Quarter: 2010Q1

REPORT INFORMATION
  Report Type: 
  Country: None (occurrence: None)
  Receive Date: 20100127
  Receipt Date: 20100121
  Transmission Date: 20100710
  Serious: Yes (Other)
  Sender: FDA-Public Use
  Company Number: US-ALLERGAN-0917360US

PATIENT
  Age: 44 Year
  Sex: Female

DRUGS (5)
  1. BOTOX COSMETIC [Suspect]
     Indication: SKIN WRINKLING
     Dosage: 32 UNITS, SINGLE
     Route: 030
     Dates: start: 20091113, end: 20091113
  2. JUVEDERM [Concomitant]
  3. VYVANSE [Concomitant]
  4. CLIMARA [Concomitant]
  5. LISINOPRIL [Concomitant]

REACTIONS (6)
  - BLINDNESS [None]
  - DIZZINESS [None]
  - FATIGUE [None]
  - MUSCULAR WEAKNESS [None]
  - PARAESTHESIA [None]
  - TINNITUS [None]
